FAERS Safety Report 15880143 (Version 1)
Quarter: 2019Q1

REPORT INFORMATION
  Report Type: Spontaneous
  Country: US (occurrence: US)
  Receive Date: 20190128
  Receipt Date: 20190128
  Transmission Date: 20190417
  Serious: Yes (Death)
  Sender: FDA-Public Use
  Company Number: None

PATIENT
  Age: 62 Year
  Sex: Male
  Weight: 128.7 kg

DRUGS (1)
  1. PACLITAXEL. [Suspect]
     Active Substance: PACLITAXEL

REACTIONS (6)
  - Feeling hot [None]
  - Respiration abnormal [None]
  - Flushing [None]
  - Unresponsive to stimuli [None]
  - Nausea [None]
  - Seizure [None]

NARRATIVE: CASE EVENT DATE: 20180702
